FAERS Safety Report 23618605 (Version 4)
Quarter: 2024Q2

REPORT INFORMATION
  Report Type: Spontaneous
  Country: US (occurrence: US)
  Receive Date: 20240311
  Receipt Date: 20240402
  Transmission Date: 20240716
  Serious: Yes (Other)
  Sender: FDA-Public Use
  Company Number: US-PFIZER INC-202400060198

PATIENT
  Age: 9 Year
  Sex: Female

DRUGS (2)
  1. XELJANZ [Suspect]
     Active Substance: TOFACITINIB CITRATE
     Dosage: 5 MG PO (PER ORAL) BID (TWICE IN A DAY)
     Route: 048
  2. XELJANZ [Suspect]
     Active Substance: TOFACITINIB CITRATE
     Dosage: 5 MG (3ML ORAL SOLUTION)
     Route: 048

REACTIONS (3)
  - Juvenile idiopathic arthritis [Unknown]
  - Product prescribing issue [Unknown]
  - Off label use [Unknown]
